FAERS Safety Report 5999134-X (Version None)
Quarter: 2008Q4

REPORT INFORMATION
  Report Type: 
  Country: None (occurrence: None)
  Receive Date: 20081215
  Receipt Date: 20081204
  Transmission Date: 20090506
  Serious: Yes (Other)
  Sender: FDA-Public Use
  Company Number: US-BAYER-200832466GPV

PATIENT
  Age: 17 Year
  Sex: Female

DRUGS (4)
  1. ALEMTUZUMAB [Suspect]
     Indication: UNRELATED DONOR BONE MARROW TRANSPLANTATION THERAPY
     Route: 065
  2. FLUDARABINE PHOSPHATE [Suspect]
     Indication: UNRELATED DONOR BONE MARROW TRANSPLANTATION THERAPY
     Route: 065
  3. MELPHALAN [Suspect]
     Indication: UNRELATED DONOR BONE MARROW TRANSPLANTATION THERAPY
     Route: 065
  4. THIOTEPA [Suspect]
     Indication: UNRELATED DONOR BONE MARROW TRANSPLANTATION THERAPY
     Route: 065

REACTIONS (2)
  - MYCOBACTERIAL INFECTION [None]
  - RASH PAPULAR [None]
